FAERS Safety Report 5751608-2 (Version None)
Quarter: 2008Q2

REPORT INFORMATION
  Report Type: 
  Country: None (occurrence: None)
  Receive Date: 20080528
  Receipt Date: 20080520
  Transmission Date: 20081010
  Serious: Yes (Death, Hospitalization, Other)
  Sender: FDA-Public Use
  Company Number: PHEH2008US04309

PATIENT
  Age: 71 Year
  Sex: Female

DRUGS (1)
  1. SANDOSTATIN LAR [Suspect]
     Indication: MENINGIOMA
     Dosage: 30 MG EVERY 28 DAYS
     Dates: start: 20080226, end: 20080429

REACTIONS (8)
  - ANAEMIA [None]
  - CARDIAC FAILURE [None]
  - DECUBITUS ULCER [None]
  - HAEMOGLOBIN DECREASED [None]
  - INFECTION [None]
  - MENINGIOMA MALIGNANT [None]
  - REFUSAL OF TREATMENT BY RELATIVE [None]
  - WOUND SECRETION [None]
